FAERS Safety Report 8922045 (Version 1)
Quarter: 2012Q4

REPORT INFORMATION
  Report Type: 
  Country: BR (occurrence: BR)
  Receive Date: 20121123
  Receipt Date: 20121123
  Transmission Date: 20130627
  Serious: Yes (Life-Threatening, Other)
  Sender: FDA-Public Use
  Company Number: PHHY2012BR106722

PATIENT
  Age: 1 Year
  Sex: Male

DRUGS (2)
  1. TRILEPTAL [Suspect]
     Indication: NERVOUS SYSTEM DISORDER
     Dosage: 03 mg, UNK
     Route: 048
  2. NEULEPTIL [Suspect]
     Indication: NERVOUS SYSTEM DISORDER
     Dosage: 20 drp (05 drops in morning, 05 drops in afternooon and 10 drpps at nigt)
     Route: 048

REACTIONS (2)
  - Apparent death [Recovering/Resolving]
  - Skin discolouration [Recovering/Resolving]
